FAERS Safety Report 24737371 (Version 2)
Quarter: 2025Q1

REPORT INFORMATION
  Report Type: Spontaneous
  Country: TR (occurrence: TR)
  Receive Date: 20241216
  Receipt Date: 20250120
  Transmission Date: 20250409
  Serious: Yes (Other)
  Sender: TAKEDA
  Company Number: TR-TAKEDA-2024TUS118467

PATIENT
  Age: 67 Year
  Sex: Male

DRUGS (6)
  1. FEBUXOSTAT [Suspect]
     Active Substance: FEBUXOSTAT
     Indication: Gout
  2. FEBUXOSTAT [Suspect]
     Active Substance: FEBUXOSTAT
     Indication: Blood uric acid increased
  3. Prednol [Concomitant]
     Dosage: 16 MILLIGRAM, QD
  4. PLAVIX [Concomitant]
     Active Substance: CLOPIDOGREL BISULFATE
  5. Beloc [Concomitant]
  6. LERCANIDIPINE HYDROCHLORIDE [Concomitant]
     Active Substance: LERCANIDIPINE HYDROCHLORIDE

REACTIONS (6)
  - Syncope [Recovered/Resolved]
  - Dysuria [Recovered/Resolved]
  - Prostatitis [Recovered/Resolved]
  - Blood glucose decreased [Not Recovered/Not Resolved]
  - Leukocytosis [Unknown]
  - Blood glucose increased [Recovered/Resolved]

NARRATIVE: CASE EVENT DATE: 20241101
